FAERS Safety Report 4687074-8 (Version None)
Quarter: 2005Q2

REPORT INFORMATION
  Report Type: 
  Country: None (occurrence: None)
  Receive Date: 20050607
  Receipt Date: 20050523
  Transmission Date: 20051028
  Serious: Yes (Hospitalization)
  Sender: FDA-Public Use
  Company Number: US_0405102899

PATIENT
  Age: 54 Year
  Sex: Female

DRUGS (3)
  1. HUMULIN R [Suspect]
     Indication: DIABETES MELLITUS
     Dosage: 42 U DAY
     Dates: start: 20040101
  2. HUMALOG MIX 75/25 [Suspect]
     Indication: DIABETES MELLITUS
     Dates: start: 20050101
  3. LANTUS [Concomitant]

REACTIONS (15)
  - ANXIETY [None]
  - BLOOD GLUCOSE FLUCTUATION [None]
  - COMPLEX REGIONAL PAIN SYNDROME [None]
  - DECREASED APPETITE [None]
  - EATING DISORDER [None]
  - FALL [None]
  - INJECTION SITE IRRITATION [None]
  - INJECTION SITE PAIN [None]
  - MENISCUS LESION [None]
  - NAUSEA [None]
  - PHARMACEUTICAL PRODUCT COMPLAINT [None]
  - PNEUMONIA [None]
  - POSTOPERATIVE INFECTION [None]
  - SPINAL CORD OPERATION [None]
  - VISUAL DISTURBANCE [None]
